FAERS Safety Report 21567575 (Version 1)
Quarter: 2022Q4

REPORT INFORMATION
  Report Type: Spontaneous
  Country: TR (occurrence: TR)
  Receive Date: 20221108
  Receipt Date: 20221108
  Transmission Date: 20230112
  Serious: Yes (Hospitalization, Disabling, Other)
  Sender: FDA-Public Use
  Company Number: TR-009507513-2211TUR001071

PATIENT
  Age: 60 Year
  Sex: Male

DRUGS (3)
  1. PEMBROLIZUMAB [Suspect]
     Active Substance: PEMBROLIZUMAB
     Indication: Malignant melanoma
     Dosage: 4 CYCLES
     Dates: start: 201709, end: 201801
  2. IPILIMUMAB [Suspect]
     Active Substance: IPILIMUMAB
     Indication: Malignant melanoma
     Dosage: 1 MILLIGRAM/KILOGRAM, Q3W
     Route: 042
     Dates: start: 201802
  3. NIVOLUMAB [Suspect]
     Active Substance: NIVOLUMAB
     Indication: Malignant melanoma
     Dosage: 1 MILLIGRAM/KILOGRAM, Q3W
     Route: 042
     Dates: start: 201802

REACTIONS (1)
  - Myelitis transverse [Unknown]

NARRATIVE: CASE EVENT DATE: 20180301
